FAERS Safety Report 20762670 (Version 1)
Quarter: 2022Q2

REPORT INFORMATION
  Report Type: Spontaneous
  Country: US (occurrence: None)
  Receive Date: 20220428
  Receipt Date: 20220428
  Transmission Date: 20220720
  Serious: No
  Sender: FDA-Public Use
  Company Number: 2022A137429

PATIENT
  Sex: Female

DRUGS (15)
  1. TEZSPIRE [Suspect]
     Active Substance: TEZEPELUMAB-EKKO
     Indication: Asthma
     Route: 058
     Dates: start: 20220322
  2. SYMBICORT [Suspect]
     Active Substance: BUDESONIDE\FORMOTEROL FUMARATE DIHYDRATE
     Route: 055
  3. OMEPRAZOLE [Suspect]
     Active Substance: OMEPRAZOLE
     Route: 048
  4. SINGULAIR [Concomitant]
     Active Substance: MONTELUKAST SODIUM
  5. NASACORT AQ [Concomitant]
     Active Substance: TRIAMCINOLONE ACETONIDE
  6. EZETIMIBE [Concomitant]
     Active Substance: EZETIMIBE
  7. ASPIRIN [Concomitant]
     Active Substance: ASPIRIN
  8. ATORVASTATIN CALCIUM [Concomitant]
     Active Substance: ATORVASTATIN CALCIUM
  9. ELIQUIS [Concomitant]
     Active Substance: APIXABAN
  10. LEVOTHYROXINE SODIUM [Concomitant]
     Active Substance: LEVOTHYROXINE SODIUM
  11. PRAMIPEXOLE DIHYDROCHLORIDE [Concomitant]
     Active Substance: PRAMIPEXOLE DIHYDROCHLORIDE
  12. SUCRALFATE [Concomitant]
     Active Substance: SUCRALFATE
  13. EPIPEN [Concomitant]
     Active Substance: EPINEPHRINE
  14. PROAIR HFA [Concomitant]
     Active Substance: ALBUTEROL SULFATE
  15. FORMOTEROL FUMARATE [Concomitant]
     Active Substance: FORMOTEROL FUMARATE

REACTIONS (1)
  - Influenza like illness [Unknown]
